FAERS Safety Report 5837799-3 (Version None)
Quarter: 2008Q3

REPORT INFORMATION
  Report Type: 
  Country: None (occurrence: None)
  Receive Date: 20080806
  Receipt Date: 20080722
  Transmission Date: 20090109
  Serious: Yes (Hospitalization)
  Sender: FDA-Public Use
  Company Number: 8034979

PATIENT
  Age: 52 Year
  Sex: Female
  Weight: 95.7 kg

DRUGS (9)
  1. KEPPRA [Suspect]
     Dosage: 500 MG 2/D
  2. KEPPRA [Suspect]
     Dosage: 750 MG 4/D PO
     Route: 048
  3. TEMODAR [Suspect]
     Indication: GLIOBLASTOMA MULTIFORME
     Dosage: PO
     Route: 048
     Dates: start: 20080607, end: 20080627
  4. PROVENTIL [Concomitant]
  5. FLOVENT [Concomitant]
  6. ZYRTEC [Concomitant]
  7. ASPIRIN [Concomitant]
  8. CLARINEX [Concomitant]
  9. NAPROSYN [Concomitant]

REACTIONS (17)
  - CEREBRAL INFARCTION [None]
  - DEATH OF COMPANION [None]
  - DRUG DOSE OMISSION [None]
  - ENCEPHALOMALACIA [None]
  - FACIAL PALSY [None]
  - FOAMING AT MOUTH [None]
  - GAZE PALSY [None]
  - GRAND MAL CONVULSION [None]
  - HAEMOGLOBIN DECREASED [None]
  - HEMIPARESIS [None]
  - HYPOALBUMINAEMIA [None]
  - LYMPHOPENIA [None]
  - MUSCULAR WEAKNESS [None]
  - STRESS [None]
  - TREATMENT NONCOMPLIANCE [None]
  - TREMOR [None]
  - WHITE BLOOD CELL COUNT DECREASED [None]
